FAERS Safety Report 15721284 (Version 1)
Quarter: 2018Q4

REPORT INFORMATION
  Report Type: Report from Study
  Country: UG (occurrence: UG)
  Receive Date: 20181214
  Receipt Date: 20181214
  Transmission Date: 20190205
  Serious: Yes (Other)
  Sender: FDA-Public Use
  Company Number: UG-B.I. PHARMACEUTICALS,INC./RIDGEFIELD-2018-BI-059978

PATIENT

DRUGS (2)
  1. SULFAMETHOXAZOLE W/TRIMETHOPRIM [Suspect]
     Active Substance: SULFAMETHOXAZOLE\TRIMETHOPRIM
     Indication: PRODUCT USED FOR UNKNOWN INDICATION
     Dosage: DOSE-NR
     Route: 065
  2. VIRAMUNE [Suspect]
     Active Substance: NEVIRAPINE
     Indication: PRODUCT USED FOR UNKNOWN INDICATION
     Dosage: DOSE-NR
     Route: 065

REACTIONS (1)
  - Erythema multiforme [Unknown]

NARRATIVE: CASE EVENT DATE: 2013
